FAERS Safety Report 5559016-4 (Version None)
Quarter: 2007Q4

REPORT INFORMATION
  Report Type: 
  Country: None (occurrence: None)
  Receive Date: 20071214
  Receipt Date: 20070913
  Transmission Date: 20080405
  Serious: No
  Sender: FDA-Public Use
  Company Number: US-ABBOTT-07P-163-0417205-00

PATIENT
  Sex: Male
  Weight: 70.37 kg

DRUGS (4)
  1. HUMIRA [Suspect]
     Indication: COLITIS ULCERATIVE
     Dosage: LOADING DOSE
     Route: 058
     Dates: start: 20070401, end: 20070401
  2. HUMIRA [Suspect]
     Route: 058
     Dates: start: 20070401, end: 20070401
  3. HUMIRA [Suspect]
     Route: 058
     Dates: start: 20070401
  4. COLAZOL [Concomitant]
     Indication: COLITIS ULCERATIVE
     Route: 048

REACTIONS (1)
  - ACCIDENTAL EXPOSURE [None]
